FAERS Safety Report 5806620-1 (Version None)
Quarter: 2008Q3

REPORT INFORMATION
  Report Type: 
  Country: None (occurrence: None)
  Receive Date: 20080710
  Receipt Date: 20080701
  Transmission Date: 20090109
  Serious: Yes (Hospitalization)
  Sender: FDA-Public Use
  Company Number: PHHY2008FR12378

PATIENT
  Sex: Female

DRUGS (2)
  1. ZOLEDRONIC ACID [Suspect]
     Indication: OSTEOPOROSIS POSTMENOPAUSAL
     Dosage: 5 MG,
  2. ANTIBIOTICS [Concomitant]

REACTIONS (5)
  - ANAEMIA [None]
  - COUGH [None]
  - HYPERPYREXIA [None]
  - INFLUENZA LIKE ILLNESS [None]
  - LUNG INFECTION [None]
